FAERS Safety Report 18975765 (Version 2)
Quarter: 2021Q2

REPORT INFORMATION
  Report Type: Spontaneous
  Country: US (occurrence: US)
  Receive Date: 20210305
  Receipt Date: 20210510
  Transmission Date: 20210717
  Serious: Yes (Hospitalization, Other)
  Sender: FDA-Public Use
  Company Number: US-BAUSCH-BL-2021-007092

PATIENT
  Sex: Female

DRUGS (1)
  1. DIAZEPAM RECTAL GEL [Suspect]
     Active Substance: DIAZEPAM
     Indication: SEVERE MYOCLONIC EPILEPSY OF INFANCY
     Route: 065

REACTIONS (3)
  - Therapy interrupted [Unknown]
  - Hospitalisation [Unknown]
  - Drug ineffective [Unknown]
